FAERS Safety Report 23666535 (Version 3)
Quarter: 2024Q2

REPORT INFORMATION
  Report Type: Spontaneous
  Country: US (occurrence: US)
  Receive Date: 20240324
  Receipt Date: 20240429
  Transmission Date: 20240716
  Serious: Yes (Other)
  Sender: FDA-Public Use
  Company Number: US-BEH-2024169846

PATIENT
  Age: 63 Year
  Sex: Female

DRUGS (7)
  1. HAEGARDA [Suspect]
     Active Substance: HUMAN C1-ESTERASE INHIBITOR
     Indication: Hereditary angioedema
     Dosage: 5000 INTERNATIONAL UNIT, BIW
     Route: 058
     Dates: start: 202311
  2. HAEGARDA [Suspect]
     Active Substance: HUMAN C1-ESTERASE INHIBITOR
     Indication: Prophylaxis
     Dosage: 5000 INTERNATIONAL UNIT, BIW
     Route: 065
  3. FIRAZYR [Concomitant]
     Active Substance: ICATIBANT ACETATE
     Dosage: EVERY 10-14 DAYS
  4. HAEGARDA [Suspect]
     Active Substance: HUMAN C1-ESTERASE INHIBITOR
     Indication: Hereditary angioedema
     Dosage: 3000 IU EVERY 3 TO 4 DAYS
     Route: 058
     Dates: start: 202402
  5. HAEGARDA [Suspect]
     Active Substance: HUMAN C1-ESTERASE INHIBITOR
     Indication: Prophylaxis
  6. HAEGARDA [Suspect]
     Active Substance: HUMAN C1-ESTERASE INHIBITOR
     Indication: Hereditary angioedema
     Dosage: 2000 IU EVERY 3 TO 4 DAYS
     Route: 058
     Dates: start: 202402
  7. HAEGARDA [Suspect]
     Active Substance: HUMAN C1-ESTERASE INHIBITOR
     Indication: Prophylaxis

REACTIONS (8)
  - Hereditary angioedema [Not Recovered/Not Resolved]
  - Depressed mood [Not Recovered/Not Resolved]
  - Product use complaint [Not Recovered/Not Resolved]
  - Wrong technique in product usage process [Not Recovered/Not Resolved]
  - Product use complaint [Not Recovered/Not Resolved]
  - Hereditary angioedema [Unknown]
  - Hereditary angioedema [Unknown]
  - Weight increased [Unknown]

NARRATIVE: CASE EVENT DATE: 20240404
